FAERS Safety Report 20671644 (Version 6)
Quarter: 2022Q3

REPORT INFORMATION
  Report Type: Spontaneous
  Country: US (occurrence: US)
  Receive Date: 20220404
  Receipt Date: 20220822
  Transmission Date: 20221027
  Serious: No
  Sender: FDA-Public Use
  Company Number: US-GLAXOSMITHKLINE-US2022057982

PATIENT
  Age: 65 Year
  Sex: Female

DRUGS (7)
  1. ZEJULA [Suspect]
     Active Substance: NIRAPARIB
     Indication: Ovarian cancer
     Dosage: 300 MG, QD
     Route: 048
     Dates: start: 20220324
  2. ZEJULA [Suspect]
     Active Substance: NIRAPARIB
     Dosage: 200 MG, QD
     Dates: start: 202204
  3. ZEJULA [Suspect]
     Active Substance: NIRAPARIB
     Dosage: 300 MG, QD
     Route: 048
  4. ZEJULA [Suspect]
     Active Substance: NIRAPARIB
     Dosage: 200 MG, QD
     Route: 048
  5. ZEJULA [Suspect]
     Active Substance: NIRAPARIB
     Dosage: 200 MG, QD
     Dates: end: 202208
  6. FLUOXETINE [Concomitant]
     Active Substance: FLUOXETINE HYDROCHLORIDE
     Indication: Product used for unknown indication
     Dosage: UNK
  7. FLUOXETINE [Concomitant]
     Active Substance: FLUOXETINE HYDROCHLORIDE
     Dosage: UNK (INCREASED DOSE)

REACTIONS (14)
  - Asthenia [Recovering/Resolving]
  - Muscular weakness [Unknown]
  - Decreased appetite [Unknown]
  - White blood cell count decreased [Recovering/Resolving]
  - Heart rate increased [Unknown]
  - Dizziness [Unknown]
  - Dehydration [Unknown]
  - Dyspnoea [Unknown]
  - Pruritus [Unknown]
  - Adverse drug reaction [Recovering/Resolving]
  - Platelet count decreased [Not Recovered/Not Resolved]
  - Laboratory test abnormal [Unknown]
  - Carbohydrate antigen 125 increased [Unknown]
  - Neoplasm progression [Unknown]

NARRATIVE: CASE EVENT DATE: 20220301
